FAERS Safety Report 11196857 (Version 2)
Quarter: 2015Q3

REPORT INFORMATION
  Report Type: Spontaneous
  Country: US (occurrence: US)
  Receive Date: 20150617
  Receipt Date: 20150701
  Transmission Date: 20151125
  Serious: Yes (Hospitalization, Other)
  Sender: FDA-Public Use
  Company Number: CHPA2015US001284

PATIENT
  Age: 77 Year
  Sex: Male

DRUGS (2)
  1. VOLTAREN [Suspect]
     Active Substance: DICLOFENAC SODIUM
     Indication: LACERATION
     Dosage: 2 TO 4G, TID TO QID
     Route: 061
     Dates: start: 2012
  2. VOLTAREN [Suspect]
     Active Substance: DICLOFENAC SODIUM
     Indication: KNEE ARTHROPLASTY
     Dosage: 2 TO 4G, TID TO QID
     Route: 061
     Dates: start: 2015

REACTIONS (10)
  - Therapeutic response unexpected [Unknown]
  - Joint injury [Recovering/Resolving]
  - Muscle injury [Recovering/Resolving]
  - Inappropriate schedule of drug administration [Unknown]
  - Product use issue [Unknown]
  - Pruritus [Not Recovered/Not Resolved]
  - Off label use [Unknown]
  - Fall [Recovering/Resolving]
  - Drug administered at inappropriate site [Unknown]
  - Laceration [Recovering/Resolving]

NARRATIVE: CASE EVENT DATE: 2012
